FAERS Safety Report 21589563 (Version 1)
Quarter: 2022Q4

REPORT INFORMATION
  Report Type: Spontaneous
  Country: JP (occurrence: JP)
  Receive Date: 20221114
  Receipt Date: 20221114
  Transmission Date: 20230113
  Serious: No
  Sender: FDA-Public Use
  Company Number: JP-GSKNCCC-Case-01606466_AE-64096

PATIENT

DRUGS (1)
  1. SOTROVIMAB [Suspect]
     Active Substance: SOTROVIMAB
     Indication: COVID-19
     Dosage: 48 ML OF XEVUDY 8 ML DILUTED WITH NORMAL SALINE 42 ML WAS ADMINISTERED
     Dates: start: 20221105, end: 20221105

REACTIONS (3)
  - Ventricular extrasystoles [Unknown]
  - Mediastinal disorder [Unknown]
  - Dyspnoea [Unknown]

NARRATIVE: CASE EVENT DATE: 20221105
